FAERS Safety Report 5087339-4 (Version None)
Quarter: 2006Q3

REPORT INFORMATION
  Report Type: 
  Country: None (occurrence: None)
  Receive Date: 20060823
  Receipt Date: 20060823
  Transmission Date: 20061208
  Serious: Yes (Life-Threatening, Hospitalization, Other)
  Sender: FDA-Public Use
  Company Number: None

PATIENT
  Sex: Female
  Weight: 76.6579 kg

DRUGS (1)
  1. VANCOMYCIN [Suspect]
     Indication: CELLULITIS

REACTIONS (15)
  - BLISTER [None]
  - CHILLS [None]
  - DIARRHOEA [None]
  - INFLAMMATION [None]
  - LIVER DISORDER [None]
  - ORAL INTAKE REDUCED [None]
  - PAIN [None]
  - PYREXIA [None]
  - RASH PRURITIC [None]
  - RENAL DISORDER [None]
  - SCAR [None]
  - SKIN BURNING SENSATION [None]
  - SKIN EXFOLIATION [None]
  - VOMITING [None]
  - WEIGHT DECREASED [None]
